FAERS Safety Report 19478617 (Version 1)
Quarter: 2021Q2

REPORT INFORMATION
  Report Type: Spontaneous
  Country: US (occurrence: US)
  Receive Date: 20210630
  Receipt Date: 20210630
  Transmission Date: 20210717
  Serious: No
  Sender: FDA-Public Use
  Company Number: US-MATRIXX INITIATIVES, INC.-2113324

PATIENT
  Age: 48 Year
  Sex: Female
  Weight: 90.91 kg

DRUGS (1)
  1. ZICAM NASAL ALLCLEAR [Suspect]
     Active Substance: EUCALYPTOL\MENTHOL
     Indication: NASOPHARYNGITIS
     Route: 045

REACTIONS (3)
  - Anosmia [Not Recovered/Not Resolved]
  - Nasal discomfort [Recovered/Resolved]
  - Ageusia [Not Recovered/Not Resolved]
